FAERS Safety Report 21296538 (Version 2)
Quarter: 2022Q3

REPORT INFORMATION
  Report Type: Report from Study
  Country: FR (occurrence: FR)
  Receive Date: 20220906
  Receipt Date: 20220919
  Transmission Date: 20221027
  Serious: Yes (Hospitalization)
  Sender: FDA-Public Use
  Company Number: FR-TEVA-2022-FR-2070138

PATIENT

DRUGS (1)
  1. PROPRANOLOL [Suspect]
     Active Substance: PROPRANOLOL HYDROCHLORIDE
     Indication: Suicide attempt
     Dosage: 6 GRAM DAILY;
     Route: 048

REACTIONS (2)
  - Intentional overdose [Unknown]
  - Toxicity to various agents [Unknown]
